FAERS Safety Report 18794564 (Version 1)
Quarter: 2021Q1

REPORT INFORMATION
  Report Type: Spontaneous
  Country: US (occurrence: US)
  Receive Date: 20210127
  Receipt Date: 20210127
  Transmission Date: 20210419
  Serious: Yes (Other)
  Sender: FDA-Public Use
  Company Number: US-PFIZER INC-2020515362

PATIENT
  Age: 67 Year
  Sex: Female
  Weight: 74.84 kg

DRUGS (2)
  1. PREDNISONE. [Concomitant]
     Active Substance: PREDNISONE
     Indication: INFLAMMATION
     Dosage: 20 MG, 1X/DAY
     Route: 048
     Dates: start: 20201124
  2. LORBRENA [Suspect]
     Active Substance: LORLATINIB
     Indication: LUNG ADENOCARCINOMA
     Dosage: 25 MG, 3X/DAY
     Route: 048
     Dates: start: 20201231, end: 20210117

REACTIONS (12)
  - Product dose omission issue [Unknown]
  - Back pain [Recovering/Resolving]
  - Off label use [Unknown]
  - Pain in extremity [Recovering/Resolving]
  - Dyspnoea [Recovering/Resolving]
  - Neck pain [Recovering/Resolving]
  - Hypoaesthesia [Recovering/Resolving]
  - Upper respiratory tract congestion [Recovering/Resolving]
  - Respiratory tract congestion [Recovering/Resolving]
  - Myalgia [Recovering/Resolving]
  - Neuropathy peripheral [Recovering/Resolving]
  - Cough [Recovering/Resolving]

NARRATIVE: CASE EVENT DATE: 20201231
